FAERS Safety Report 13308542 (Version 1)
Quarter: 2017Q1

REPORT INFORMATION
  Report Type: Spontaneous
  Country: US (occurrence: US)
  Receive Date: 20170308
  Receipt Date: 20170308
  Transmission Date: 20170428
  Serious: Yes (Hospitalization)
  Sender: FDA-Public Use
  Company Number: None

PATIENT
  Age: 70 Year
  Sex: Male
  Weight: 82.2 kg

DRUGS (1)
  1. GABAPENTIN. [Suspect]
     Active Substance: GABAPENTIN
     Indication: NEUROPATHY PERIPHERAL
     Route: 048
     Dates: start: 20170114, end: 20170223

REACTIONS (21)
  - Logorrhoea [None]
  - Tremor [None]
  - Metabolic disorder [None]
  - Mental status changes [None]
  - Gait disturbance [None]
  - Trismus [None]
  - Sensory disturbance [None]
  - Anaemia [None]
  - Abnormal behaviour [None]
  - Cogwheel rigidity [None]
  - Microcytic anaemia [None]
  - Photopsia [None]
  - Perseveration [None]
  - Fall [None]
  - Tangentiality [None]
  - Toxicity to various agents [None]
  - Confusional state [None]
  - Dysarthria [None]
  - Irritability [None]
  - Hyperreflexia [None]
  - Acute kidney injury [None]

NARRATIVE: CASE EVENT DATE: 20170221
